FAERS Safety Report 4665747-0 (Version None)
Quarter: 2005Q2

REPORT INFORMATION
  Report Type: 
  Country: None (occurrence: None)
  Receive Date: 20050517
  Receipt Date: 20050131
  Transmission Date: 20051028
  Serious: No
  Sender: FDA-Public Use
  Company Number: S05-USA-00539-01

PATIENT
  Age: 77 Year
  Sex: Male

DRUGS (5)
  1. NAMENDA [Suspect]
     Dosage: 5 MG QD PO
     Route: 048
     Dates: start: 20050125
  2. LISINOPRIL [Concomitant]
  3. OXYBUTYNIN [Concomitant]
  4. ASPIRIN [Concomitant]
  5. FIBER [Concomitant]

REACTIONS (4)
  - BALANCE DISORDER [None]
  - CONSTIPATION [None]
  - DYSARTHRIA [None]
  - FALL [None]
